FAERS Safety Report 11214956 (Version 2)
Quarter: 2015Q3

REPORT INFORMATION
  Report Type: Spontaneous
  Country: US (occurrence: None)
  Receive Date: 20150622
  Receipt Date: 20150723
  Transmission Date: 20151125
  Serious: Yes (Other)
  Sender: FDA-Public Use
  Company Number: ADR-2015-01173

PATIENT
  Age: 54 Year
  Sex: Female

DRUGS (6)
  1. MORPHINE INTRATHECAL [Suspect]
     Active Substance: MORPHINE
  2. MARCAINE [Suspect]
     Active Substance: BUPIVACAINE HYDROCHLORIDE
     Dosage: 3.063 MG/DAY; SEE B5
  3. ROBAXIN [Suspect]
     Active Substance: METHOCARBAMOL
     Dates: start: 2013
  4. CLONIDINE. [Suspect]
     Active Substance: CLONIDINE
     Dates: end: 20150528
  5. BACLOFEN ORAL [Suspect]
     Active Substance: BACLOFEN
     Dosage: 10 MG THREE TABLETS PER DAY
     Route: 048
  6. BACLOFEN INTRATHECAL [Suspect]
     Active Substance: BACLOFEN
     Indication: PAIN
     Dosage: 153.1 MCG/DAY; SEE B5

REACTIONS (4)
  - Spondylolisthesis [None]
  - Hypotension [None]
  - Drug dose omission [None]
  - Somnolence [None]

NARRATIVE: CASE EVENT DATE: 20150403
